FAERS Safety Report 9113424 (Version 14)
Quarter: 2016Q3

REPORT INFORMATION
  Report Type: Spontaneous
  Country: CA (occurrence: CA)
  Receive Date: 20130129
  Receipt Date: 20160921
  Transmission Date: 20161109
  Serious: Yes (Hospitalization, Other)
  Sender: FDA-Public Use
  Company Number: CA-GLAXOSMITHKLINE-A0981006A

PATIENT
  Age: 47 Year
  Sex: Female
  Weight: 58 kg

DRUGS (15)
  1. BENLYSTA [Suspect]
     Active Substance: BELIMUMAB
     Dosage: UNK
     Dates: start: 20120412
  2. BENLYSTA [Suspect]
     Active Substance: BELIMUMAB
     Dosage: 620MG, 0, 2, 4 WEEKS, THEN EVERY 4 WEEKS
     Route: 042
     Dates: start: 20120412
  3. BENLYSTA [Suspect]
     Active Substance: BELIMUMAB
     Dosage: UNK
     Dates: start: 20120412
  4. PNEUMOCOCCAL VACCINE POLYVALENT NOS [Concomitant]
     Active Substance: PNEUMOCOCCAL VACCINE POLYVALENT
     Indication: PROPHYLAXIS
     Dates: start: 20140322
  5. BENLYSTA [Suspect]
     Active Substance: BELIMUMAB
     Dosage: 400 MG, UNK
  6. CHLOROQUINE. [Concomitant]
     Active Substance: CHLOROQUINE
     Dosage: 250 MG, TWICE WEEKLY
     Route: 048
  7. MEDROL [Concomitant]
     Active Substance: METHYLPREDNISOLONE
     Indication: PRODUCT USED FOR UNKNOWN INDICATION
     Dosage: DOSE REDUCED TO BETWEEN 0 MG AND 0.5 MGFOLLOW UP 25APR2014: 2MG TAB DOSE 1 MG PER DAY
  8. CELLCEPT [Concomitant]
     Active Substance: MYCOPHENOLATE MOFETIL\MYCOPHENOLATE MOFETIL HYDROCHLORIDE
     Indication: PRODUCT USED FOR UNKNOWN INDICATION
     Dosage: 3 DF, 1D
     Route: 048
  9. BENLYSTA [Suspect]
     Active Substance: BELIMUMAB
     Indication: SYSTEMIC LUPUS ERYTHEMATOSUS
     Dosage: 0, 2, 4 WEEKS, THEN EVERY 4 WEEKS
     Route: 042
     Dates: start: 20120412
  10. BENLYSTA [Suspect]
     Active Substance: BELIMUMAB
     Dosage: 120 MG, UNK
  11. BENLYSTA [Suspect]
     Active Substance: BELIMUMAB
     Dosage: 620 MG, UNK
  12. NOVOPHENIRAM [Concomitant]
     Indication: PRODUCT USED FOR UNKNOWN INDICATION
     Dosage: UNK
  13. BENLYSTA [Suspect]
     Active Substance: BELIMUMAB
     Dosage: 620MG, 0, 2, 4 WEEKS, THEN EVERY 4 WEEKS
     Route: 042
     Dates: start: 20120412
  14. BENLYSTA [Suspect]
     Active Substance: BELIMUMAB
     Dosage: 620 MG, UNK
     Route: 042
     Dates: start: 201206
  15. BENLYSTA [Suspect]
     Active Substance: BELIMUMAB
     Dosage: 120 MG X2 400 MG X1
     Route: 042
     Dates: start: 201205

REACTIONS (24)
  - Malaise [Unknown]
  - Angina pectoris [Recovered/Resolved]
  - Fatigue [Recovered/Resolved]
  - Arthralgia [Unknown]
  - Therapy cessation [Unknown]
  - Systemic lupus erythematosus [Unknown]
  - Pneumonia [Unknown]
  - Underdose [Unknown]
  - Infusion related reaction [Unknown]
  - White blood cell count decreased [Unknown]
  - Erythema [Recovered/Resolved]
  - Lower respiratory tract infection [Unknown]
  - Blood test abnormal [Unknown]
  - Pallor [Recovered/Resolved]
  - Weight increased [Unknown]
  - Pain [Unknown]
  - Pain of skin [Recovered/Resolved]
  - Drug ineffective [Unknown]
  - Throat irritation [Unknown]
  - Red blood cell count decreased [Unknown]
  - Feeling hot [Unknown]
  - Fall [Unknown]
  - Meniscus injury [Unknown]
  - Chills [Unknown]

NARRATIVE: CASE EVENT DATE: 201212
